FAERS Safety Report 11465145 (Version 1)
Quarter: 2015Q3

REPORT INFORMATION
  Report Type: Spontaneous
  Country: LB (occurrence: LB)
  Receive Date: 20150907
  Receipt Date: 20150907
  Transmission Date: 20151125
  Serious: Yes (Hospitalization, Other)
  Sender: FDA-Public Use
  Company Number: PHHY2015LB106484

PATIENT
  Age: 39 Year
  Sex: Male

DRUGS (2)
  1. ERYTHROMYCIN. [Suspect]
     Active Substance: ERYTHROMYCIN
     Indication: ANTIBIOTIC THERAPY
     Dosage: 500 MG, UNK
     Route: 065
  2. CAFERGOT [Interacting]
     Active Substance: CAFFEINE\ERGOTAMINE TARTRATE
     Indication: MIGRAINE
     Dosage: 6 DF, QD
     Route: 065

REACTIONS (7)
  - Ergot poisoning [Recovered/Resolved]
  - Ischaemia [Recovering/Resolving]
  - Vasospasm [Recovering/Resolving]
  - Pain [Recovered/Resolved]
  - Hypoaesthesia [Recovered/Resolved]
  - Ischaemic neuropathy [Not Recovered/Not Resolved]
  - Drug interaction [Unknown]
